FAERS Safety Report 4420083-2 (Version None)
Quarter: 2004Q2

REPORT INFORMATION
  Report Type: 
  Country: None (occurrence: None)
  Receive Date: 20040622
  Receipt Date: 20030603
  Transmission Date: 20050107
  Serious: Yes (Hospitalization)
  Sender: FDA-Public Use
  Company Number: 339297

PATIENT
  Age: 67 Year
  Sex: Female
  Weight: 68 kg

DRUGS (1)
  1. XELODA [Suspect]
     Indication: UNEVALUABLE EVENT
     Dosage: 1000 MG/M2 2 PER DAY ORAL
     Route: 048
     Dates: start: 20030401, end: 20030411

REACTIONS (2)
  - DIARRHOEA [None]
  - ERYTHEMA [None]
